FAERS Safety Report 6108946-3 (Version None)
Quarter: 2009Q1

REPORT INFORMATION
  Report Type: 
  Country: None (occurrence: None)
  Receive Date: 20090310
  Receipt Date: 20090224
  Transmission Date: 20090719
  Serious: Yes (Hospitalization)
  Sender: FDA-Public Use
  Company Number: MX-ELI_LILLY_AND_COMPANY-MX200902007267

PATIENT
  Age: 68 Year
  Sex: Female
  Weight: 42 kg

DRUGS (2)
  1. FORTEO [Suspect]
     Indication: OSTEOPOROSIS
     Dosage: 20 UG, DAILY (1/D)
     Route: 058
     Dates: start: 20070301
  2. CALCITRIOL [Concomitant]
     Dosage: 0.25 MG, 2/D
     Route: 065

REACTIONS (4)
  - DRUG INEFFECTIVE [None]
  - FOOD INTOLERANCE [None]
  - ROTAVIRUS INFECTION [None]
  - WEIGHT DECREASED [None]
